FAERS Safety Report 23143251 (Version 2)
Quarter: 2024Q1

REPORT INFORMATION
  Report Type: Report from Study
  Country: JP (occurrence: JP)
  Receive Date: 20231103
  Receipt Date: 20240319
  Transmission Date: 20240410
  Serious: Yes (Hospitalization, Other)
  Sender: FDA-Public Use
  Company Number: JP-ASTELLAS-2023JP012192

PATIENT
  Age: 72 Year
  Sex: Male
  Weight: 60.4 kg

DRUGS (18)
  1. ENFORTUMAB VEDOTIN [Suspect]
     Active Substance: ENFORTUMAB VEDOTIN
     Indication: Transitional cell carcinoma
     Route: 065
     Dates: start: 20220114, end: 20220128
  2. ENFORTUMAB VEDOTIN [Suspect]
     Active Substance: ENFORTUMAB VEDOTIN
     Dosage: 1.0 MG/KG, UNKNOWN FREQ.
     Route: 065
     Dates: start: 20220228, end: 20220411
  3. ENFORTUMAB VEDOTIN [Suspect]
     Active Substance: ENFORTUMAB VEDOTIN
     Route: 065
     Dates: start: 20220425, end: 20220704
  4. ENFORTUMAB VEDOTIN [Suspect]
     Active Substance: ENFORTUMAB VEDOTIN
     Route: 065
     Dates: start: 20220725, end: 20220801
  5. ENFORTUMAB VEDOTIN [Suspect]
     Active Substance: ENFORTUMAB VEDOTIN
     Route: 065
     Dates: start: 20220822, end: 20220905
  6. OXYCODONE [Suspect]
     Active Substance: OXYCODONE\OXYCODONE HYDROCHLORIDE
     Indication: Product used for unknown indication
     Route: 048
     Dates: start: 20210224, end: 20221115
  7. OXYCODONE HYDROCHLORIDE [Suspect]
     Active Substance: OXYCODONE HYDROCHLORIDE
     Indication: Product used for unknown indication
     Route: 048
     Dates: start: 20210224, end: 20221115
  8. MAGNESIUM OXIDE [Concomitant]
     Active Substance: MAGNESIUM OXIDE
     Indication: Constipation prophylaxis
     Route: 048
     Dates: start: 20210224, end: 20221115
  9. SYMPROIC [Concomitant]
     Active Substance: NALDEMEDINE
     Indication: Constipation prophylaxis
     Dosage: 0.2 MG, ONCE DAILY
     Route: 048
     Dates: start: 20210415, end: 20221115
  10. DEXAMETHASONE SODIUM PHOSPHATE [Concomitant]
     Active Substance: DEXAMETHASONE PHOSPHATE\DEXAMETHASONE SODIUM PHOSPHATE
     Indication: Decreased appetite
     Route: 065
     Dates: start: 20220204
  11. DEXAMETHASONE SODIUM PHOSPHATE [Concomitant]
     Active Substance: DEXAMETHASONE PHOSPHATE\DEXAMETHASONE SODIUM PHOSPHATE
     Indication: Malaise
     Route: 065
     Dates: start: 20220207, end: 20220214
  12. DECADRON [Concomitant]
     Active Substance: DEXAMETHASONE
     Indication: Decreased appetite
     Route: 048
     Dates: start: 20220215, end: 20220228
  13. DECADRON [Concomitant]
     Active Substance: DEXAMETHASONE
     Indication: Malaise
     Dosage: 0.5 MG, ONCE DAILY
     Route: 048
     Dates: start: 20220301, end: 20220314
  14. DECADRON [Concomitant]
     Active Substance: DEXAMETHASONE
     Dosage: 0.25 MG, ONCE DAILY
     Route: 048
     Dates: start: 20220315, end: 20220328
  15. HEPARINOID [Concomitant]
     Indication: Dry skin
     Dosage: APPLY AN APPROPRIATE AMOUNT TO THE DRY AREA, THRICE DAILY
     Route: 061
     Dates: start: 20220228, end: 20221115
  16. BETAMETHASONE BUTYRATE PROPIONATE [Concomitant]
     Active Substance: BETAMETHASONE BUTYRATE PROPIONATE
     Indication: Dermatitis bullous
     Dosage: APPLY AN APPROPRIATE AMOUNT TO THE BLISTER AREA, TWICE DAILY
     Route: 061
     Dates: start: 20220627, end: 20220704
  17. Azunol [Concomitant]
     Indication: Dry skin
     Dosage: APPLY AN APPROPRIATE AMOUNT, AS NEEDED
     Route: 061
     Dates: start: 20220801, end: 20221115
  18. Azunol [Concomitant]
     Indication: Skin haemorrhage

REACTIONS (10)
  - Decreased appetite [Recovered/Resolved]
  - Malaise [Recovered/Resolved]
  - Dermatitis bullous [Recovered/Resolved]
  - Gynaecomastia [Not Recovered/Not Resolved]
  - Skin haemorrhage [Not Recovered/Not Resolved]
  - Alopecia [Not Recovered/Not Resolved]
  - Dry skin [Not Recovered/Not Resolved]
  - Dry skin [Not Recovered/Not Resolved]
  - Constipation [Not Recovered/Not Resolved]
  - COVID-19 [Recovered/Resolved]

NARRATIVE: CASE EVENT DATE: 20220203
